FAERS Safety Report 7017357-8 (Version None)
Quarter: 2010Q3

REPORT INFORMATION
  Report Type: 
  Country: None (occurrence: None)
  Receive Date: 20100928
  Receipt Date: 20100920
  Transmission Date: 20110219
  Serious: No
  Sender: FDA-Public Use
  Company Number: 2009BI002471

PATIENT
  Sex: Male

DRUGS (3)
  1. TYSABRI [Suspect]
     Indication: MULTIPLE SCLEROSIS
     Route: 042
     Dates: start: 20080926
  2. SEROQUEL [Concomitant]
     Indication: DEPRESSION
  3. LITHIUM [Concomitant]
     Indication: BIPOLAR DISORDER

REACTIONS (8)
  - ANXIETY [None]
  - COGNITIVE DISORDER [None]
  - FEELING COLD [None]
  - GAIT DISTURBANCE [None]
  - HYPOAESTHESIA [None]
  - MEMORY IMPAIRMENT [None]
  - MUSCULAR WEAKNESS [None]
  - STRESS [None]
